FAERS Safety Report 11642352 (Version 2)
Quarter: 2016Q1

REPORT INFORMATION
  Report Type: Spontaneous
  Country: US (occurrence: US)
  Receive Date: 20151019
  Receipt Date: 20160107
  Transmission Date: 20160525
  Serious: No
  Sender: FDA-Public Use
  Company Number: US-LUNDBECK-DKLU2003948

PATIENT
  Sex: Male
  Weight: 84 kg

DRUGS (3)
  1. NORTHERA [Suspect]
     Active Substance: DROXIDOPA
     Indication: AUTONOMIC FAILURE SYNDROME
     Route: 065
  2. NORTHERA [Suspect]
     Active Substance: DROXIDOPA
     Indication: ORTHOSTATIC HYPOTENSION
     Route: 065
     Dates: start: 20150615
  3. NORTHERA [Suspect]
     Active Substance: DROXIDOPA
     Indication: SYNCOPE

REACTIONS (2)
  - Peripheral swelling [Recovering/Resolving]
  - Blood pressure fluctuation [Unknown]
